FAERS Safety Report 5006560-4 (Version None)
Quarter: 2006Q2

REPORT INFORMATION
  Report Type: 
  Country: None (occurrence: None)
  Receive Date: 20060519
  Receipt Date: 20060510
  Transmission Date: 20061013
  Serious: Yes (Disabling)
  Sender: FDA-Public Use
  Company Number: 2006AC00898

PATIENT
  Age: 68 Year
  Sex: Male

DRUGS (2)
  1. CRESTOR [Suspect]
     Indication: HYPERCHOLESTEROLAEMIA
     Route: 048
     Dates: start: 20030101
  2. CRESTOR [Suspect]
     Dosage: RESTARTED 10 DAYS AFTER STOPPING PREVIOUS DOSE
     Route: 048

REACTIONS (1)
  - VISUAL DISTURBANCE [None]
